FAERS Safety Report 21931874 (Version 1)
Quarter: 2023Q1

REPORT INFORMATION
  Report Type: Spontaneous
  Country: JP (occurrence: JP)
  Receive Date: 20230131
  Receipt Date: 20230131
  Transmission Date: 20230418
  Serious: Yes (Death)
  Sender: FDA-Public Use
  Company Number: JP-PFIZER INC-PV202300017588

PATIENT
  Age: 83 Year
  Sex: Male

DRUGS (1)
  1. TAFAMIDIS [Suspect]
     Active Substance: TAFAMIDIS
     Indication: Cardiac amyloidosis
     Dosage: 61 MG
     Route: 048

REACTIONS (3)
  - Bradyarrhythmia [Fatal]
  - Cardiac amyloidosis [Fatal]
  - Condition aggravated [Fatal]

NARRATIVE: CASE EVENT DATE: 20230104
